FAERS Safety Report 21778796 (Version 2)
Quarter: 2023Q1

REPORT INFORMATION
  Report Type: Report from Study
  Country: US (occurrence: US)
  Receive Date: 20221226
  Receipt Date: 20230331
  Transmission Date: 20230418
  Serious: No
  Sender: FDA-Public Use
  Company Number: US-ABBVIE-4211833

PATIENT
  Age: 52 Year
  Sex: Female

DRUGS (3)
  1. HUMIRA [Suspect]
     Active Substance: ADALIMUMAB
     Indication: Ankylosing spondylitis
     Dosage: CITRATE FREE. THE START DATE FOR EVENT COVID OF RECOVERED/RESOLVED OUTOCME SHOULD BE 2022?STRENGT...
     Route: 058
     Dates: start: 20220517, end: 20221229
  2. HUMIRA [Suspect]
     Active Substance: ADALIMUMAB
     Dosage: CITRATE FREE?STRENGTH: 40 MG
     Route: 058
  3. CELEBREX [Concomitant]
     Active Substance: CELECOXIB
     Indication: Product used for unknown indication

REACTIONS (14)
  - Thrombosis [Unknown]
  - Sinusitis [Unknown]
  - Influenza [Unknown]
  - COVID-19 [Recovered/Resolved]
  - Immune system disorder [Unknown]
  - Head discomfort [Unknown]
  - Skin mass [Unknown]
  - Fall [Unknown]
  - COVID-19 [Unknown]
  - Fatigue [Unknown]
  - Ankylosing spondylitis [Unknown]
  - Nasopharyngitis [Unknown]
  - Skin disorder [Unknown]
  - Benign bone neoplasm [Unknown]

NARRATIVE: CASE EVENT DATE: 20230101
